FAERS Safety Report 17171561 (Version 2)
Quarter: 2019Q4

REPORT INFORMATION
  Report Type: Spontaneous
  Country: US (occurrence: US)
  Receive Date: 20191218
  Receipt Date: 20191223
  Transmission Date: 20200122
  Serious: No
  Sender: FDA-Public Use
  Company Number: US-PFIZER INC-2019539346

PATIENT
  Age: 69 Year
  Sex: Female
  Weight: 47.62 kg

DRUGS (3)
  1. ALPHAGAN P [Concomitant]
     Active Substance: BRIMONIDINE TARTRATE
     Indication: GLAUCOMA
     Dosage: IN ONE EYE
     Route: 047
     Dates: start: 2019
  2. COENZYME Q10 [Concomitant]
     Active Substance: UBIDECARENONE
  3. LATANOPROST. [Suspect]
     Active Substance: LATANOPROST
     Indication: GLAUCOMA
     Dosage: UNK
     Dates: start: 2015, end: 2019

REACTIONS (5)
  - Eye discharge [Recovering/Resolving]
  - Erythema [Recovering/Resolving]
  - Eye pruritus [Recovering/Resolving]
  - Hypersensitivity [Recovering/Resolving]
  - Ocular hyperaemia [Recovering/Resolving]

NARRATIVE: CASE EVENT DATE: 20191212
